FAERS Safety Report 18802225 (Version 1)
Quarter: 2021Q1

REPORT INFORMATION
  Report Type: Spontaneous
  Country: US (occurrence: US)
  Receive Date: 20210128
  Receipt Date: 20210128
  Transmission Date: 20210419
  Serious: No
  Sender: FDA-Public Use
  Company Number: US-PFIZER INC-2021064306

PATIENT
  Sex: Female

DRUGS (1)
  1. IBRANCE [Suspect]
     Active Substance: PALBOCICLIB
     Dosage: 125 MG, CYCLIC (1 QD (ONCE A DAY) FOR 21 DAYS, THEN 7 DAYS OFF)
     Dates: start: 20200214

REACTIONS (2)
  - Fatigue [Unknown]
  - Alopecia [Unknown]
